FAERS Safety Report 6769241-2 (Version None)
Quarter: 2010Q2

REPORT INFORMATION
  Report Type: 
  Country: None (occurrence: None)
  Receive Date: 20100607
  Receipt Date: 20100525
  Transmission Date: 20101027
  Serious: Yes (Death)
  Sender: FDA-Public Use
  Company Number: B0658620A

PATIENT

DRUGS (8)
  1. ETOPOSIDE [Suspect]
     Indication: CENTRAL NERVOUS SYSTEM LYMPHOMA
     Dosage: 125 MG/M2 / CYCLIC INTRAVENOUS
     Route: 042
  2. METHOTREXATE [Suspect]
     Indication: CENTRAL NERVOUS SYSTEM LYMPHOMA
     Dosage: 1.5 G/M2 / CYCLIC / INTRAVENOUS
     Route: 042
  3. CYCLOPHOSPHAMIDE [Suspect]
     Indication: CENTRAL NERVOUS SYSTEM LYMPHOMA
     Dosage: 750 MG/M2 / CYCLIC / INTRAVENOUS
     Route: 042
  4. CYTARABINE [Suspect]
     Indication: CENTRAL NERVOUS SYSTEM LYMPHOMA
     Dosage: 30 MG / CYCLIC / INTRAVENOUS
     Route: 042
  5. HYDROCORTISONE [Suspect]
     Indication: CENTRAL NERVOUS SYSTEM LYMPHOMA
     Dosage: 15 MG / CYCLIC / INTRATHECAL
     Route: 037
  6. METHYLPREDNISOLONE [Suspect]
     Indication: CENTRAL NERVOUS SYSTEM LYMPHOMA
     Dosage: 1 MG/KG / CYCLIC / INTRAVENOUS
     Route: 042
  7. CALCIUM FOLINATE [Concomitant]
  8. GRANULOCYTE COL.STIM.FACT [Concomitant]

REACTIONS (1)
  - SEPTIC SHOCK [None]
